FAERS Safety Report 9983223 (Version 1)
Quarter: 2014Q1

REPORT INFORMATION
  Report Type: Report from Study
  Country: US (occurrence: US)
  Receive Date: 20140307
  Receipt Date: 20140307
  Transmission Date: 20141002
  Serious: No
  Sender: FDA-Public Use
  Company Number: US-ABBVIE-13P-163-1178263-00

PATIENT
  Age: 43 Year
  Sex: Male

DRUGS (4)
  1. HUMIRA [Suspect]
     Indication: CROHN^S DISEASE
     Dates: start: 201308
  2. LIALDA [Concomitant]
     Indication: PRODUCT USED FOR UNKNOWN INDICATION
     Dosage: TWO PILLS, IN THE MORNING
  3. CELEXA [Concomitant]
     Indication: DEPRESSION
  4. PRILOSEC [Concomitant]
     Indication: PRODUCT USED FOR UNKNOWN INDICATION

REACTIONS (1)
  - Injection site pain [Recovering/Resolving]
